FAERS Safety Report 4659326-9 (Version None)
Quarter: 2005Q2

REPORT INFORMATION
  Report Type: 
  Country: None (occurrence: None)
  Receive Date: 20050502
  Receipt Date: 20050311
  Transmission Date: 20051028
  Serious: No
  Sender: FDA-Public Use
  Company Number: 200511973US

PATIENT
  Age: 67 Year
  Sex: Female

DRUGS (5)
  1. KETEK [Suspect]
     Indication: UPPER RESPIRATORY TRACT INFECTION
     Dosage: 800 MG QD PO
     Route: 048
     Dates: start: 20050101, end: 20050101
  2. SYNTHROID [Concomitant]
  3. INFLUENZA VIRUS VACCINE POLYVALENT (FLU SHOT) [Concomitant]
  4. EYE DROPS NOS [Concomitant]
  5. FLUTICASONE PROPIONATE (FLONASE) [Concomitant]

REACTIONS (4)
  - ARTHRALGIA [None]
  - DYSPNOEA [None]
  - EYE IRRITATION [None]
  - PAIN IN EXTREMITY [None]
